FAERS Safety Report 7401125-9 (Version None)
Quarter: 2011Q2

REPORT INFORMATION
  Report Type: 
  Country: None (occurrence: None)
  Receive Date: 20110407
  Receipt Date: 20101011
  Transmission Date: 20111010
  Serious: Yes (Hospitalization)
  Sender: FDA-Public Use
  Company Number: US-BAYER-201027816NA

PATIENT
  Sex: Female
  Weight: 75 kg

DRUGS (17)
  1. YAZ [Suspect]
     Indication: MENORRHAGIA
  2. LOVENOX [Concomitant]
  3. MELOXICAM [Concomitant]
     Dosage: 7.5 MG, UNK
     Route: 048
  4. MULTIVITAMIN PREPARATION + MINERAL SUPPLEMENT [Concomitant]
  5. VALERIAN ROOT [Concomitant]
  6. BLACK COHOSH [Concomitant]
  7. YAZ [Suspect]
     Indication: ACNE
     Route: 048
     Dates: start: 20080311, end: 20080719
  8. PRAVASTATIN [Concomitant]
  9. YAZ [Suspect]
     Indication: UTERINE PAIN
  10. CYMBALTA [Concomitant]
     Indication: DEPRESSION
     Dosage: UNK
     Route: 048
     Dates: start: 20080317, end: 20090701
  11. AMBIEN [Concomitant]
     Indication: SLEEP DISORDER THERAPY
     Dosage: UNK
     Route: 048
     Dates: start: 20080317, end: 20090701
  12. MORPHINE [Concomitant]
  13. OXYGEN [Concomitant]
  14. CYCLOBENZAPRINE [Concomitant]
  15. FLEXERIL [Concomitant]
     Dosage: UNK
     Route: 048
     Dates: start: 20080630
  16. OMEGA [CARBINOXAMINE MALEATE] [Concomitant]
  17. FLAXSEED OIL [Concomitant]

REACTIONS (4)
  - UTERINE LEIOMYOMA [None]
  - UTERINE ENLARGEMENT [None]
  - ENDOMETRIOSIS [None]
  - PULMONARY EMBOLISM [None]
